FAERS Safety Report 8595767-5 (Version None)
Quarter: 2012Q3

REPORT INFORMATION
  Report Type: 
  Country: None (occurrence: None)
  Receive Date: 20120815
  Receipt Date: 20120813
  Transmission Date: 20120928
  Serious: Yes (Death)
  Sender: FDA-Public Use
  Company Number: US-ELI_LILLY_AND_COMPANY-US201202004628

PATIENT
  Age: 49 Year
  Sex: Male

DRUGS (1)
  1. AXIRON [Suspect]

REACTIONS (1)
  - MYOCARDIAL INFARCTION [None]
